FAERS Safety Report 22030497 (Version 1)
Quarter: 2023Q1

REPORT INFORMATION
  Report Type: Spontaneous
  Country: US (occurrence: US)
  Receive Date: 20230223
  Receipt Date: 20230223
  Transmission Date: 20230418
  Serious: No
  Sender: FDA-Public Use
  Company Number: US-LANTHEUS-LMI-2022-01269

PATIENT
  Age: 43 Year
  Sex: Female
  Weight: 126 kg

DRUGS (1)
  1. DEFINITY [Suspect]
     Active Substance: PERFLUTREN
     Indication: Echocardiogram
     Dosage: 5.5 MILLILITRE (DILUTION DETAILS NOT REPORTED)
     Route: 042
     Dates: start: 20221019, end: 20221019

REACTIONS (3)
  - Pain in extremity [Recovering/Resolving]
  - Pain [Recovering/Resolving]
  - Back pain [Recovering/Resolving]

NARRATIVE: CASE EVENT DATE: 20221019
